FAERS Safety Report 23223221 (Version 1)
Quarter: 2023Q4

REPORT INFORMATION
  Report Type: Spontaneous
  Country: JP (occurrence: JP)
  Receive Date: 20231123
  Receipt Date: 20231123
  Transmission Date: 20240109
  Serious: Yes (Hospitalization, Other)
  Sender: FDA-Public Use
  Company Number: JP-SAKK-2023SA158884AA

PATIENT

DRUGS (1)
  1. HYDROXYCHLOROQUINE SULFATE [Suspect]
     Active Substance: HYDROXYCHLOROQUINE SULFATE
     Indication: Systemic lupus erythematosus
     Dosage: CUMULATIVE DOSE OF 438 G (FILM-COATED TABLET)
     Route: 048
     Dates: end: 2022

REACTIONS (3)
  - Renal impairment [Unknown]
  - Pyrexia [Unknown]
  - Colour blindness [Recovered/Resolved]

NARRATIVE: CASE EVENT DATE: 20220528
